FAERS Safety Report 8491473 (Version 4)
Quarter: 2014Q2

REPORT INFORMATION
  Report Type: Report from Study
  Country: DE (occurrence: DE)
  Receive Date: 20120403
  Receipt Date: 20140422
  Transmission Date: 20141212
  Serious: Yes (Hospitalization)
  Sender: FDA-Public Use
  Company Number: DE-ROCHE-1051310

PATIENT
  Age: 69 Year
  Sex: Male
  Weight: 71.5 kg

DRUGS (6)
  1. RITUXIMAB [Suspect]
     Indication: CHRONIC LYMPHOCYTIC LEUKAEMIA
     Dosage: DOSE AS REPORTED: 700 MG
     Route: 042
     Dates: start: 20111213, end: 20111213
  2. RITUXIMAB [Suspect]
     Route: 042
     Dates: start: 20120117
  3. RITUXIMAB [Suspect]
     Dosage: ADMINISTRATION SPLITED OVER TWO DAYS
     Route: 042
     Dates: start: 20111213, end: 20120522
  4. BENDAMUSTINE [Suspect]
     Indication: CHRONIC LYMPHOCYTIC LEUKAEMIA
     Route: 065
     Dates: start: 20111224
  5. BENDAMUSTINE [Suspect]
     Route: 065
     Dates: start: 20111225
  6. BENDAMUSTINE [Suspect]
     Dosage: ADMINISTRATION SPLITED OVER TWO DAYS
     Route: 065
     Dates: start: 20111213, end: 20120522

REACTIONS (3)
  - Renal failure [Recovered/Resolved]
  - Tumour lysis syndrome [Unknown]
  - Cytokine storm [Recovered/Resolved]
